FAERS Safety Report 5902815-7 (Version None)
Quarter: 2008Q3

REPORT INFORMATION
  Report Type: 
  Country: None (occurrence: None)
  Receive Date: 20080930
  Receipt Date: 20080918
  Transmission Date: 20090109
  Serious: Yes (Hospitalization)
  Sender: FDA-Public Use
  Company Number: FR-JNJFOC-20080904779

PATIENT
  Age: 55 Year
  Sex: Female
  Weight: 117 kg

DRUGS (6)
  1. INFLIXIMAB [Suspect]
     Route: 042
  2. INFLIXIMAB [Suspect]
     Indication: PSORIASIS
     Route: 042
  3. LUTERAN [Concomitant]
     Indication: MENOPAUSE
     Route: 048
  4. HYDROCHLOROTHIAZIDE + BISOPROLOL [Concomitant]
     Indication: HYPERTENSION
     Route: 048
  5. SAFORELLE [Concomitant]
     Indication: PSORIASIS
     Route: 003
  6. DEXERYL [Concomitant]
     Indication: PSORIASIS
     Route: 003

REACTIONS (1)
  - DIVERTICULAR PERFORATION [None]
